FAERS Safety Report 8453801-7 (Version None)
Quarter: 2012Q2

REPORT INFORMATION
  Report Type: 
  Country: None (occurrence: None)
  Receive Date: 20120620
  Receipt Date: 20120608
  Transmission Date: 20120825
  Serious: Yes (Other)
  Sender: FDA-Public Use
  Company Number: FR-ELI_LILLY_AND_COMPANY-FR201204004840

PATIENT
  Age: 56 Year
  Sex: Female
  Weight: 86 kg

DRUGS (5)
  1. ALIMTA [Suspect]
     Dosage: 500 MG/M2, UNK
     Route: 042
     Dates: start: 20111117
  2. DEXAMETHASONE [Concomitant]
     Indication: PREMEDICATION
  3. VITAMIN B-12 [Concomitant]
     Indication: PREMEDICATION
  4. ALIMTA [Suspect]
     Indication: LUNG ADENOCARCINOMA STAGE IV
     Dosage: 500 MG/M2, UNK
     Route: 042
     Dates: start: 20110825, end: 20111028
  5. FOLIC ACID [Concomitant]
     Indication: PREMEDICATION

REACTIONS (3)
  - PYREXIA [None]
  - TRANSMISSION OF AN INFECTIOUS AGENT VIA A MEDICINAL PRODUCT [None]
  - BACTERAEMIA [None]
